APPROVED DRUG PRODUCT: ENTACAPONE
Active Ingredient: ENTACAPONE
Strength: 200MG
Dosage Form/Route: TABLET;ORAL
Application: A205792 | Product #001 | TE Code: AB
Applicant: AJANTA PHARMA LTD
Approved: Aug 31, 2017 | RLD: No | RS: No | Type: RX